FAERS Safety Report 8072718-3 (Version None)
Quarter: 2011Q4

REPORT INFORMATION
  Report Type: 
  Country: None (occurrence: None)
  Receive Date: 20111221
  Receipt Date: 20111027
  Transmission Date: 20120403
  Serious: Yes (Other)
  Sender: FDA-Public Use
  Company Number: PHEH2011US04060

PATIENT
  Age: 17 Year
  Sex: Male

DRUGS (20)
  1. NEUPOGEN [Concomitant]
  2. CALCIUM CARBONATE [Concomitant]
  3. NOVOLIN R [Concomitant]
  4. NYSTATIN [Concomitant]
  5. DAPSONE [Concomitant]
  6. EMLA [Concomitant]
  7. COLACE (DOCUSATE SODIUM) [Concomitant]
  8. EPIPEN [Concomitant]
  9. EXJADE [Suspect]
     Indication: CHELATION THERAPY
     Dosage: 1000 MG, QD, ORAL
     Route: 048
     Dates: start: 20110622
  10. ZOFRAN [Concomitant]
  11. PERIDEX (CHLOREXIDINE GLUCONATE) [Concomitant]
  12. FLUCONAZOLE [Concomitant]
  13. LEUCOVORIN CALCIUM [Concomitant]
  14. ADEKS (VITAMINS NOS, ZINC) [Concomitant]
  15. NEURONTIN [Concomitant]
  16. CARAFATE [Concomitant]
  17. VITAMIN D [Concomitant]
  18. MIRALAX [Concomitant]
  19. PREVACID [Concomitant]
  20. BENADRYL [Concomitant]

REACTIONS (1)
  - RASH MACULO-PAPULAR [None]
